FAERS Safety Report 8319248-9 (Version None)
Quarter: 2012Q2

REPORT INFORMATION
  Report Type: 
  Country: None (occurrence: None)
  Receive Date: 20120427
  Receipt Date: 20120419
  Transmission Date: 20120825
  Serious: Yes (Other)
  Sender: FDA-Public Use
  Company Number: GB-ABBOTT-12P-167-0913242-00

PATIENT
  Sex: Male
  Weight: 117 kg

DRUGS (1)
  1. HUMIRA [Suspect]
     Indication: ANKYLOSING SPONDYLITIS
     Route: 058
     Dates: start: 20110511

REACTIONS (8)
  - LYMPHOCYTOSIS [None]
  - BACK PAIN [None]
  - ARTHRALGIA [None]
  - PAIN [None]
  - IMMUNE SYSTEM DISORDER [None]
  - ALANINE AMINOTRANSFERASE INCREASED [None]
  - WHITE BLOOD CELL COUNT INCREASED [None]
  - INFECTIOUS MONONUCLEOSIS [None]
